FAERS Safety Report 9170653 (Version 1)
Quarter: 2013Q1

REPORT INFORMATION
  Report Type: Spontaneous
  Country: PT (occurrence: None)
  Receive Date: 20130311
  Receipt Date: 20130311
  Transmission Date: 20140127
  Serious: Yes (Other)
  Sender: FDA-Public Use
  Company Number: ENTC2013-0093

PATIENT
  Age: 68 Year
  Sex: Male
  Weight: 65 kg

DRUGS (5)
  1. STALEVO (LEVODOPA, CARBIDOPA, ENTACAPONE) [Suspect]
     Indication: PARKINSON^S DISEASE
     Dosage: 1 DF,
     Route: 048
  2. COMTAN [Concomitant]
  3. SINEMET [Concomitant]
  4. LEVODOPA-CARBIDOPA [Concomitant]
  5. ENTACAPONE [Concomitant]

REACTIONS (1)
  - Monoclonal gammopathy [None]
